FAERS Safety Report 4492848-2 (Version None)
Quarter: 2004Q4

REPORT INFORMATION
  Report Type: 
  Country: None (occurrence: None)
  Receive Date: 20041102
  Receipt Date: 20041102
  Transmission Date: 20050328
  Serious: Yes (Hospitalization)
  Sender: FDA-Public Use
  Company Number: None

PATIENT
  Age: 47 Year
  Sex: Female
  Weight: 73 kg

DRUGS (4)
  1. YASMIN [Suspect]
     Indication: MENORRHAGIA
     Dosage: 0.03 MG/3MG DAILY ORAL
     Route: 048
     Dates: start: 20040626, end: 20040826
  2. LORATADINE [Concomitant]
  3. FLONASE [Concomitant]
  4. IRON SUPPLEMENT [Concomitant]

REACTIONS (3)
  - DIZZINESS [None]
  - NAUSEA [None]
  - PULMONARY EMBOLISM [None]
